FAERS Safety Report 24436950 (Version 5)
Quarter: 2024Q4

REPORT INFORMATION
  Report Type: Spontaneous
  Country: JP (occurrence: JP)
  Receive Date: 20241015
  Receipt Date: 20241125
  Transmission Date: 20250114
  Serious: Yes (Hospitalization, Other)
  Sender: UCB
  Company Number: JP-UCBJ-CD202409756UCBPHAPROD

PATIENT
  Age: 92 Year
  Sex: Female
  Weight: 45.9 kg

DRUGS (4)
  1. VIMPAT [Suspect]
     Active Substance: LACOSAMIDE
     Indication: Temporal lobe epilepsy
     Dosage: 100 MILLIGRAM, ONCE DAILY (QD)
     Route: 048
  2. RISPERIDONE [Concomitant]
     Active Substance: RISPERIDONE
     Indication: Delirium
     Dosage: 1 MILLIGRAM, ONCE DAILY (QD)
  3. ACETAMINOPHEN [Concomitant]
     Active Substance: ACETAMINOPHEN
     Indication: Product used for unknown indication
     Dosage: 1500 MILLIGRAM, ONCE DAILY (QD)
  4. NOREPINEPHRINE [Concomitant]
     Active Substance: NOREPINEPHRINE\NOREPINEPHRINE BITARTRATE
     Indication: Blood pressure decreased
     Dosage: UNK
     Route: 042

REACTIONS (5)
  - Fall [Unknown]
  - Tibia fracture [Unknown]
  - Pulmonary congestion [Recovered/Resolved]
  - Pleural effusion [Recovered/Resolved]
  - Cardiac pacemaker insertion [Unknown]
